FAERS Safety Report 22931865 (Version 2)
Quarter: 2023Q4

REPORT INFORMATION
  Report Type: Report from Study
  Country: US (occurrence: US)
  Receive Date: 20230911
  Receipt Date: 20231031
  Transmission Date: 20240109
  Serious: Yes (Other)
  Sender: FDA-Public Use
  Company Number: US-ABBVIE-5288828

PATIENT
  Age: 64 Year
  Sex: Male
  Weight: 97.522 kg

DRUGS (2)
  1. HUMIRA [Suspect]
     Active Substance: ADALIMUMAB
     Indication: Uveitis
     Dosage: CITRATE FREE, FORM STRENGTH: 40 MILLIGRAM
     Route: 058
     Dates: start: 20211019
  2. HUMIRA [Suspect]
     Active Substance: ADALIMUMAB
     Dosage: CF. FORM STRENGTH: 40 MILLIGRAM
     Route: 058

REACTIONS (6)
  - Irritable bowel syndrome [Recovered/Resolved]
  - Irritable bowel syndrome [Recovering/Resolving]
  - Uveitis [Recovered/Resolved]
  - Fatigue [Recovering/Resolving]
  - Hypersomnia [Not Recovered/Not Resolved]
  - Headache [Recovered/Resolved]

NARRATIVE: CASE EVENT DATE: 20211019
